FAERS Safety Report 5093152-4 (Version None)
Quarter: 2006Q3

REPORT INFORMATION
  Report Type: 
  Country: None (occurrence: None)
  Receive Date: 20060828
  Receipt Date: 20060821
  Transmission Date: 20061208
  Serious: Yes (Other)
  Sender: FDA-Public Use
  Company Number: 2006096607

PATIENT
  Sex: Male

DRUGS (1)
  1. NICORETTE [Suspect]
     Indication: SMOKING CESSATION THERAPY
     Dosage: UNSPECIFIED, TRANSDERMAL
     Route: 062
     Dates: start: 20060101, end: 20060108

REACTIONS (5)
  - APPLICATION SITE IRRITATION [None]
  - INCORRECT DRUG ADMINISTRATION DURATION [None]
  - INFECTED SKIN ULCER [None]
  - SCAR [None]
  - THERMAL BURN [None]
